FAERS Safety Report 23712749 (Version 1)
Quarter: 2024Q2

REPORT INFORMATION
  Report Type: Spontaneous
  Country: US (occurrence: US)
  Receive Date: 20240405
  Receipt Date: 20240405
  Transmission Date: 20240716
  Serious: No
  Sender: FDA-Public Use
  Company Number: US-MYLANLABS-2024M1027303

PATIENT
  Sex: Female

DRUGS (1)
  1. METHYLPHENIDATE [Suspect]
     Active Substance: METHYLPHENIDATE
     Indication: Product used for unknown indication
     Dosage: 15 MILLIGRAM
     Route: 062

REACTIONS (4)
  - Application site erythema [Unknown]
  - Application site irritation [Unknown]
  - Application site bruise [Unknown]
  - Application site pain [Unknown]
